FAERS Safety Report 9063168 (Version 2)
Quarter: 2014Q1

REPORT INFORMATION
  Report Type: Spontaneous
  Country: US (occurrence: US)
  Receive Date: 20130213
  Receipt Date: 20140109
  Transmission Date: 20141002
  Serious: No
  Sender: FDA-Public Use
  Company Number: US-009507513-1301USA014520

PATIENT
  Age: 19 Year
  Sex: Female

DRUGS (1)
  1. NEXPLANON [Suspect]
     Indication: CONTRACEPTION
     Dosage: 1 DF, FREQUENCY: 3 YEARS
     Route: 059
     Dates: start: 20120824

REACTIONS (3)
  - Gastric atony [Unknown]
  - Abdominal pain upper [Unknown]
  - Menometrorrhagia [Unknown]
